FAERS Safety Report 9969753 (Version 2)
Quarter: 2014Q2

REPORT INFORMATION
  Report Type: Spontaneous
  Country: FR (occurrence: None)
  Receive Date: 20140304
  Receipt Date: 20140516
  Transmission Date: 20141212
  Serious: Yes (Hospitalization)
  Sender: FDA-Public Use
  Company Number: SYM-2014-17781

PATIENT
  Age: 90 Year
  Sex: Female

DRUGS (7)
  1. METRONIDAZOLE [Suspect]
     Indication: CHOLANGITIS
     Dates: start: 20111216, end: 20111221
  2. DISULONE [Suspect]
     Indication: PEMPHIGOID
     Route: 048
     Dates: start: 20111029, end: 20111216
  3. CEFTRIAXONE SODIUM [Suspect]
     Indication: CHOLANGITIS
     Dates: start: 20111216, end: 20111216
  4. TRIFLUCAN [Suspect]
     Indication: ORAL FUNGAL INFECTION
     Route: 048
     Dates: start: 20111122, end: 20111216
  5. PREVISCAN [Suspect]
     Indication: DEEP VEIN THROMBOSIS
     Route: 048
     Dates: start: 20111207
  6. DERMOVAL (CLOBETASOL PROPIONATE) (CLOBETASOL PROPIONATE) [Concomitant]
  7. HEPARIN (HEPARIN) (HEPARIN) [Concomitant]

REACTIONS (10)
  - Drug reaction with eosinophilia and systemic symptoms [None]
  - Deep vein thrombosis [None]
  - Sepsis [None]
  - Hypotension [None]
  - Tachycardia [None]
  - Rash maculo-papular [None]
  - Rash erythematous [None]
  - Pleural effusion [None]
  - Splenomegaly [None]
  - Ascites [None]
